FAERS Safety Report 9506688 (Version 9)
Quarter: 2014Q4

REPORT INFORMATION
  Report Type: Report from Study
  Country: US (occurrence: US)
  Receive Date: 20130908
  Receipt Date: 20141104
  Transmission Date: 20150529
  Serious: Yes (Hospitalization, Other)
  Sender: FDA-Public Use
  Company Number: US-SANOFI-AVENTIS-2013SA071101

PATIENT
  Age: 56 Year
  Sex: Female

DRUGS (3)
  1. NUVIGIL [Suspect]
     Active Substance: ARMODAFINIL
     Route: 065
  2. AUBAGIO [Suspect]
     Active Substance: TERIFLUNOMIDE
     Indication: MULTIPLE SCLEROSIS
     Route: 048
     Dates: start: 20130707
  3. ADDERALL [Concomitant]
     Active Substance: AMPHETAMINE ASPARTATE\AMPHETAMINE SULFATE\DEXTROAMPHETAMINE SACCHARATE\DEXTROAMPHETAMINE SULFATE
     Route: 065

REACTIONS (19)
  - Hand fracture [Not Recovered/Not Resolved]
  - Urinary tract infection [Unknown]
  - Fatigue [Unknown]
  - Hypertension [Unknown]
  - Kidney infection [Unknown]
  - Fall [Unknown]
  - Pollakiuria [Unknown]
  - Intervertebral disc protrusion [Unknown]
  - Candida infection [Unknown]
  - Multiple sclerosis [Not Recovered/Not Resolved]
  - Vomiting [Unknown]
  - Rash [Recovered/Resolved]
  - Dehydration [Unknown]
  - Transient ischaemic attack [Unknown]
  - Pain [Unknown]
  - Emotional disorder [Unknown]
  - Malaise [Unknown]
  - Dysuria [Unknown]
  - Insomnia [Unknown]

NARRATIVE: CASE EVENT DATE: 201310
